FAERS Safety Report 5981739-3 (Version None)
Quarter: 2008Q4

REPORT INFORMATION
  Report Type: 
  Country: None (occurrence: None)
  Receive Date: 20081205
  Receipt Date: 20081114
  Transmission Date: 20090506
  Serious: No
  Sender: FDA-Public Use
  Company Number: US-B.I. PHARMACEUTICALS,INC./RIDGEFIELD-2008-BP-17315BP

PATIENT
  Sex: Male

DRUGS (3)
  1. MICARDIS [Suspect]
  2. LISINOPRIL [Suspect]
  3. ATENOLOL [Concomitant]

REACTIONS (2)
  - LUPUS-LIKE SYNDROME [None]
  - RASH GENERALISED [None]
